FAERS Safety Report 11150788 (Version 1)
Quarter: 2015Q2

REPORT INFORMATION
  Report Type: Spontaneous
  Country: US (occurrence: None)
  Receive Date: 20150528
  Receipt Date: 20150528
  Transmission Date: 20150821
  Serious: Yes (Death, Other)
  Sender: FDA-Public Use
  Company Number: US-H14001-15-00807

PATIENT
  Sex: Male

DRUGS (3)
  1. CORTICOSTEROIDS [Suspect]
     Active Substance: CORTICOSTEROID NOS
     Indication: MUSCULOSKELETAL PAIN
  2. PREDNISONE. [Suspect]
     Active Substance: PREDNISONE
     Indication: MUSCULOSKELETAL PAIN
     Dates: start: 2011, end: 2013
  3. VALACYCLOVIR [Suspect]
     Active Substance: VALACYCLOVIR HYDROCHLORIDE
     Indication: HERPES ZOSTER
     Dates: start: 201308

REACTIONS (8)
  - Cardiac hypertrophy [None]
  - Sudden death [None]
  - Angiopathy [None]
  - Arteriosclerosis coronary artery [None]
  - Herpes zoster disseminated [None]
  - Brain oedema [None]
  - Impaired healing [None]
  - Drug abuse [None]
